FAERS Safety Report 20975859 (Version 1)
Quarter: 2022Q2

REPORT INFORMATION
  Report Type: Spontaneous
  Country: US (occurrence: US)
  Receive Date: 20220617
  Receipt Date: 20220617
  Transmission Date: 20220720
  Serious: No
  Sender: FDA-Public Use
  Company Number: US-VIRTUS PHARMACEUTICALS, LLC-2021VTS00055

PATIENT
  Sex: Female
  Weight: 90.703 kg

DRUGS (19)
  1. PROGESTERONE [Suspect]
     Active Substance: PROGESTERONE
     Dosage: 600 MG, 1X/DAY
     Dates: end: 2021
  2. PROGESTERONE [Suspect]
     Active Substance: PROGESTERONE
     Dosage: UNK
     Dates: start: 2021
  3. MYCAPSSA [Suspect]
     Active Substance: OCTREOTIDE
     Indication: Acromegaly
     Dosage: 20 MG, 2X/DAY
     Route: 048
     Dates: start: 202104, end: 2021
  4. MYCAPSSA [Suspect]
     Active Substance: OCTREOTIDE
     Dosage: UNK
     Route: 048
     Dates: start: 202106, end: 2021
  5. MYCAPSSA [Suspect]
     Active Substance: OCTREOTIDE
     Dosage: 60 MG PER DAY
     Route: 048
     Dates: start: 2021
  6. MYCAPSSA [Suspect]
     Active Substance: OCTREOTIDE
     Dosage: 80 MG PER DAY
     Route: 048
     Dates: start: 2021
  7. GABAPENTIN [Suspect]
     Active Substance: GABAPENTIN
     Dosage: 300 MG, 1X/DAY
     Dates: end: 202104
  8. UNSPECIFIED INGREDIENT [Suspect]
     Active Substance: UNSPECIFIED INGREDIENT
  9. HYDROCORTISONE [Concomitant]
     Active Substance: HYDROCORTISONE
     Dosage: 30 MG, 1X/DAY
  10. LEVOTHYROXINE [Concomitant]
     Active Substance: LEVOTHYROXINE
     Dosage: 40 ?G, 1X/DAY
  11. LIOTHYRONINE [Concomitant]
     Active Substance: LIOTHYRONINE
     Dosage: 30 ?G, 1X/DAY
  12. ESTRADIOL [Concomitant]
     Active Substance: ESTRADIOL
     Dosage: 0.5 MG, 1X/DAY
  13. TESTOSTERONE [Concomitant]
     Active Substance: TESTOSTERONE
     Dosage: 7.5 MG, 1X/DAY
  14. FAMICICLOVIR [Concomitant]
     Dosage: 2000 MG, 1X/DAY
  15. NALTREXONE [Concomitant]
     Active Substance: NALTREXONE
     Dosage: 9 MG, 1X/DAY
     Dates: end: 2021
  16. NALTREXONE [Concomitant]
     Active Substance: NALTREXONE
  17. TIZANIDINE [Concomitant]
     Active Substance: TIZANIDINE
  18. TRAZODONE [Concomitant]
     Active Substance: TRAZODONE HYDROCHLORIDE
  19. DESMOPRESSIN [Concomitant]
     Active Substance: DESMOPRESSIN
     Dosage: 1 MG TAKEN ^SOMETIMES^

REACTIONS (8)
  - Faeces pale [Recovering/Resolving]
  - Abdominal discomfort [Recovered/Resolved]
  - Drug interaction [Recovered/Resolved]
  - Dehydration [Unknown]
  - Diarrhoea [Recovered/Resolved]
  - Nausea [Recovered/Resolved]
  - Muscle spasms [Unknown]
  - Unevaluable event [Unknown]

NARRATIVE: CASE EVENT DATE: 20210101
